FAERS Safety Report 7804392-2 (Version None)
Quarter: 2011Q4

REPORT INFORMATION
  Report Type: 
  Country: None (occurrence: None)
  Receive Date: 20111010
  Receipt Date: 20110927
  Transmission Date: 20120403
  Serious: Yes (Hospitalization)
  Sender: FDA-Public Use
  Company Number: US-ELI_LILLY_AND_COMPANY-US201101006783

PATIENT
  Sex: Female

DRUGS (16)
  1. OXYGEN [Concomitant]
     Dosage: 3 L, UNK
  2. STOOL SOFTENER [Concomitant]
     Dosage: UNK, DAILY (1/D)
  3. LEVOTHYROXINE SODIUM [Concomitant]
  4. FENTANYL [Concomitant]
     Dosage: 75 UG, UNK
  5. ALBUTEROL [Concomitant]
     Dosage: UNK, QID
  6. FORTEO [Suspect]
     Indication: OSTEOPOROSIS
     Dosage: 20 UG, DAILY (1/D)
     Dates: end: 20110814
  7. CENTRUM [Concomitant]
     Dosage: UNK, DAILY (1/D)
  8. CADUET [Concomitant]
  9. LISINOPRIL [Concomitant]
  10. MUCINEX DM [Concomitant]
  11. SPIRIVA [Concomitant]
     Dosage: UNK, DAILY (1/D)
  12. XOPENEX [Concomitant]
     Dosage: UNK, DAILY (1/D)
  13. MEGACE [Concomitant]
     Indication: APPETITE DISORDER
     Dosage: UNK, DAILY (1/D)
  14. ADVAIR DISKUS 100/50 [Concomitant]
     Dosage: UNK, DAILY (1/D)
  15. PROTONIX [Concomitant]
     Indication: GASTROOESOPHAGEAL REFLUX DISEASE
     Dosage: UNK, DAILY (1/D)
  16. PEPCID [Concomitant]

REACTIONS (6)
  - OEDEMA PERIPHERAL [None]
  - HAEMORRHOIDAL HAEMORRHAGE [None]
  - RENAL FAILURE [None]
  - CYSTITIS [None]
  - OESOPHAGEAL ULCER [None]
  - DYSPNOEA [None]
